FAERS Safety Report 23320882 (Version 2)
Quarter: 2024Q1

REPORT INFORMATION
  Report Type: Spontaneous
  Country: US (occurrence: US)
  Receive Date: 20231220
  Receipt Date: 20240105
  Transmission Date: 20240410
  Serious: No
  Sender: FDA-Public Use
  Company Number: US-Ipsen Biopharmaceuticals, Inc.-2023-27903

PATIENT
  Age: 39 Year
  Sex: Female

DRUGS (5)
  1. DYSPORT [Suspect]
     Active Substance: ABOBOTULINUMTOXINA
     Indication: Skin wrinkling
     Route: 065
     Dates: start: 20231204, end: 20231204
  2. POLYLACTIDE, L- [Suspect]
     Active Substance: POLYLACTIDE, L-
     Indication: Skin cosmetic procedure
     Dosage: 2.5 ML OF SCULPTRA IN EACH TEMPLE
     Route: 058
     Dates: start: 20231107, end: 20231107
  3. POLYLACTIDE, L- [Suspect]
     Active Substance: POLYLACTIDE, L-
     Dosage: 2.5 ML OF SCULPTRA IN EACH TEMPLE
     Route: 058
     Dates: start: 20231204, end: 20231204
  4. HYALURONIC ACID\LIDOCAINE [Suspect]
     Active Substance: HYALURONIC ACID\LIDOCAINE
     Indication: Skin cosmetic procedure
     Dates: start: 20231204, end: 20231204
  5. HYALURONIC ACID [Suspect]
     Active Substance: HYALURONIC ACID
     Indication: Skin cosmetic procedure
     Dates: start: 20231204, end: 20231204

REACTIONS (3)
  - Injection site papule [Not Recovered/Not Resolved]
  - Injection site papule [Not Recovered/Not Resolved]
  - Off label use [Unknown]

NARRATIVE: CASE EVENT DATE: 20231204
